FAERS Safety Report 24187409 (Version 3)
Quarter: 2024Q4

REPORT INFORMATION
  Report Type: Spontaneous
  Country: CA (occurrence: CA)
  Receive Date: 20240808
  Receipt Date: 20241001
  Transmission Date: 20250115
  Serious: No
  Sender: UCB
  Company Number: CA-UCBSA-2024039710

PATIENT
  Sex: Male

DRUGS (1)
  1. NEUPRO [Suspect]
     Active Substance: ROTIGOTINE
     Indication: Product used for unknown indication
     Dosage: 2 UNK
     Route: 065
     Dates: start: 2014

REACTIONS (1)
  - Product adhesion issue [Unknown]
